FAERS Safety Report 21285889 (Version 1)
Quarter: 2022Q3

REPORT INFORMATION
  Report Type: Spontaneous
  Country: US (occurrence: US)
  Receive Date: 20220902
  Receipt Date: 20220902
  Transmission Date: 20221027
  Serious: No
  Sender: FDA-Public Use
  Company Number: US-APOTEX-2022AP010370

PATIENT
  Sex: Female

DRUGS (1)
  1. ATROPINE SULFATE [Suspect]
     Active Substance: ATROPINE SULFATE
     Indication: Glaucoma
     Dosage: 1 DROP IN 1 EYE TWICE A DAY
     Route: 047
     Dates: start: 202206

REACTIONS (1)
  - Abnormal sensation in eye [Recovered/Resolved]

NARRATIVE: CASE EVENT DATE: 20220101
